FAERS Safety Report 19497498 (Version 1)
Quarter: 2021Q3

REPORT INFORMATION
  Report Type: Spontaneous
  Country: DE (occurrence: DE)
  Receive Date: 20210706
  Receipt Date: 20210706
  Transmission Date: 20211014
  Serious: Yes (Hospitalization, Other)
  Sender: FDA-Public Use
  Company Number: DE-TEVA-2021-DE-1929462

PATIENT
  Age: 56 Year
  Sex: Female
  Weight: 86 kg

DRUGS (3)
  1. METOPROLOL. [Suspect]
     Active Substance: METOPROLOL
     Dosage: 47.5 MILLIGRAM DAILY; 1?0?0?0
     Route: 048
  2. LEVOTHYROXINE SODIUM. [Concomitant]
     Active Substance: LEVOTHYROXINE SODIUM
     Dosage: .15 MILLIGRAM DAILY; 1?0?0?0
     Route: 048
  3. RAMIPRIL. [Suspect]
     Active Substance: RAMIPRIL
     Dosage: 5 MILLIGRAM DAILY; 1?0?0?0
     Route: 048

REACTIONS (5)
  - Headache [Unknown]
  - Coordination abnormal [Unknown]
  - Muscular weakness [Unknown]
  - Dizziness [Unknown]
  - Bradycardia [Unknown]
